FAERS Safety Report 18306743 (Version 1)
Quarter: 2020Q3

REPORT INFORMATION
  Report Type: Spontaneous
  Country: US (occurrence: US)
  Receive Date: 20200923
  Receipt Date: 20200923
  Transmission Date: 20201103
  Serious: No
  Sender: FDA-Public Use
  Company Number: None

PATIENT
  Age: 57 Year
  Sex: Male

DRUGS (1)
  1. APIXABAN (APIXABAN 2.5MG TAB) [Suspect]
     Active Substance: APIXABAN
     Indication: ATRIAL FIBRILLATION

REACTIONS (8)
  - Diverticulum intestinal [None]
  - Haematochezia [None]
  - Oesophageal haemorrhage [None]
  - Haemoglobin decreased [None]
  - Haematocrit decreased [None]
  - Mallory-Weiss syndrome [None]
  - Gastric haemorrhage [None]
  - Haemorrhoids [None]

NARRATIVE: CASE EVENT DATE: 20200330
